FAERS Safety Report 8543939-8 (Version None)
Quarter: 2012Q3

REPORT INFORMATION
  Report Type: 
  Country: None (occurrence: None)
  Receive Date: 20120727
  Receipt Date: 20120726
  Transmission Date: 20120928
  Serious: Yes (Death, Other)
  Sender: FDA-Public Use
  Company Number: JP-PFIZER INC-2012162827

PATIENT
  Age: 69 Year
  Sex: Male
  Weight: 64 kg

DRUGS (4)
  1. HUMULIN 70/30 [Concomitant]
     Indication: DIABETES MELLITUS
     Dosage: 14 IU, 2X/DAY
     Route: 058
     Dates: start: 20020602
  2. VARENICLINE TARTRATE [Suspect]
     Indication: SMOKING CESSATION THERAPY
  3. PURSENNID [Concomitant]
     Indication: CONSTIPATION
     Dosage: 12 MG, 1X/DAY
     Route: 048
     Dates: start: 20020602
  4. VARENICLINE TARTRATE [Suspect]
     Indication: NICOTINE DEPENDENCE
     Dosage: 0.5 MG/DAY
     Route: 048
     Dates: start: 20120704

REACTIONS (1)
  - ACUTE MYOCARDIAL INFARCTION [None]
